FAERS Safety Report 11844364 (Version 1)
Quarter: 2015Q4

REPORT INFORMATION
  Report Type: Spontaneous
  Country: US (occurrence: None)
  Receive Date: 20151216
  Receipt Date: 20151216
  Transmission Date: 20160305
  Serious: No
  Sender: FDA-Public Use
  Company Number: None

PATIENT
  Sex: Female

DRUGS (1)
  1. HUMIRA [Suspect]
     Active Substance: ADALIMUMAB
     Indication: CROHN^S DISEASE
     Dosage: 20MG, Q2W, SQ
     Route: 058
     Dates: start: 20151007

REACTIONS (3)
  - Drug ineffective [None]
  - Antibody test abnormal [None]
  - Therapy cessation [None]
